FAERS Safety Report 14677182 (Version 1)
Quarter: 2018Q1

REPORT INFORMATION
  Report Type: Spontaneous
  Country: US (occurrence: US)
  Receive Date: 20180323
  Receipt Date: 20180323
  Transmission Date: 20180509
  Serious: Yes (Other)
  Sender: FDA-Public Use
  Company Number: None

PATIENT
  Age: 62 Year
  Sex: Female
  Weight: 67.5 kg

DRUGS (2)
  1. KEPPRA [Suspect]
     Active Substance: LEVETIRACETAM
     Indication: SEIZURE
     Route: 048
     Dates: start: 20170815, end: 20180110
  2. KEPPRA [Concomitant]
     Active Substance: LEVETIRACETAM

REACTIONS (1)
  - Dupuytren^s contracture [None]

NARRATIVE: CASE EVENT DATE: 20180110
